FAERS Safety Report 6719652-6 (Version None)
Quarter: 2010Q2

REPORT INFORMATION
  Report Type: 
  Country: None (occurrence: None)
  Receive Date: 20100511
  Receipt Date: 20100429
  Transmission Date: 20101027
  Serious: Yes (Other)
  Sender: FDA-Public Use
  Company Number: B0595700A

PATIENT
  Sex: Female

DRUGS (2)
  1. ALLI [Suspect]
     Dosage: 120MG THREE TIMES PER DAY
     Route: 065
  2. MULTI-VITAMINS [Concomitant]

REACTIONS (25)
  - ANXIETY [None]
  - ASTHENIA [None]
  - CIRCULATORY COLLAPSE [None]
  - CONFUSIONAL STATE [None]
  - COUGH [None]
  - DECREASED APPETITE [None]
  - DIZZINESS [None]
  - DYSMENORRHOEA [None]
  - FATIGUE [None]
  - HEADACHE [None]
  - HYPERCHLORHYDRIA [None]
  - HYPERPHAGIA [None]
  - HYPOAESTHESIA [None]
  - ILL-DEFINED DISORDER [None]
  - LOWER RESPIRATORY TRACT INFECTION [None]
  - MALAISE [None]
  - MENORRHAGIA [None]
  - MENSTRUATION IRREGULAR [None]
  - MIGRAINE [None]
  - NASOPHARYNGITIS [None]
  - NEUTROPENIA [None]
  - PANIC REACTION [None]
  - PRODUCTIVE COUGH [None]
  - STRESS [None]
  - WHITE BLOOD CELL COUNT DECREASED [None]
